FAERS Safety Report 19649096 (Version 1)
Quarter: 2021Q3

REPORT INFORMATION
  Report Type: Report from Study
  Country: US (occurrence: US)
  Receive Date: 20210802
  Receipt Date: 20210802
  Transmission Date: 20211014
  Serious: Yes (Hospitalization, Other)
  Sender: FDA-Public Use
  Company Number: US-BRISTOL-MYERS SQUIBB COMPANY-BMS-2021-061885

PATIENT
  Age: 15 Year
  Sex: Male
  Weight: 52.7 kg

DRUGS (5)
  1. DACARBAZINE. [Suspect]
     Active Substance: DACARBAZINE
     Indication: HODGKIN^S DISEASE
     Dosage: 580 MILLIGRAM
     Route: 042
     Dates: start: 20210528, end: 20210528
  2. VINBLASTINE SULFATE. [Suspect]
     Active Substance: VINBLASTINE SULFATE
     Indication: HODGKIN^S DISEASE
     Dosage: 10 MILLIGRAM
     Route: 042
     Dates: start: 20210528, end: 20210528
  3. NIVOLUMAB [Suspect]
     Active Substance: NIVOLUMAB
     Indication: HODGKIN^S DISEASE
     Dosage: 158 MILLIGRAM
     Route: 042
     Dates: start: 20210528, end: 20210528
  4. DOXORUBICIN HYDROCHLORIDE. [Suspect]
     Active Substance: DOXORUBICIN HYDROCHLORIDE
     Indication: HODGKIN^S DISEASE
     Dosage: 40 MILLIGRAM
     Route: 042
     Dates: start: 20210528, end: 20210528
  5. UNASYN [SULTAMICILLIN] [Concomitant]
     Active Substance: SULTAMICILLIN
     Indication: PYREXIA
     Route: 065

REACTIONS (3)
  - Pneumonitis [Not Recovered/Not Resolved]
  - Pleural effusion [Not Recovered/Not Resolved]
  - Pulmonary oedema [Not Recovered/Not Resolved]

NARRATIVE: CASE EVENT DATE: 20210528
